FAERS Safety Report 4677926-7 (Version None)
Quarter: 2005Q2

REPORT INFORMATION
  Report Type: 
  Country: None (occurrence: None)
  Receive Date: 20050527
  Receipt Date: 20050527
  Transmission Date: 20051028
  Serious: Yes (Death, Life-Threatening)
  Sender: FDA-Public Use
  Company Number: None

PATIENT
  Age: 60 Year
  Sex: Male
  Weight: 72.5755 kg

DRUGS (1)
  1. ZYVOX [Suspect]
     Dosage: 600 MG IV Q 12 HOURS
     Route: 042
     Dates: start: 20050410, end: 20050419

REACTIONS (2)
  - SEPSIS [None]
  - WHITE BLOOD CELL COUNT DECREASED [None]
